FAERS Safety Report 7250327-3 (Version None)
Quarter: 2011Q1

REPORT INFORMATION
  Report Type: 
  Country: None (occurrence: None)
  Receive Date: 20110128
  Receipt Date: 20110115
  Transmission Date: 20110831
  Serious: No
  Sender: FDA-Public Use
  Company Number: US-B.I. PHARMACEUTICALS,INC./RIDGEFIELD-2011-BP-01627BP

PATIENT
  Sex: Male

DRUGS (7)
  1. ALBUTEROL [Concomitant]
     Indication: DYSPNOEA
  2. SPIRIVA [Suspect]
     Dosage: 18 MCG
     Route: 055
     Dates: start: 20050101
  3. OMEGA 3 FISH OIL/FLAXSEED [Concomitant]
     Indication: PROPHYLAXIS
     Dosage: 2400 MG
  4. NIACIN [Concomitant]
     Indication: PROPHYLAXIS
  5. POTASSIUM [Concomitant]
     Indication: PROPHYLAXIS
     Dosage: 99 MG
  6. HYTRIN [Concomitant]
     Indication: PROSTATOMEGALY
     Dosage: 10 MG
     Dates: start: 20040101
  7. ASA [Concomitant]
     Indication: PROPHYLAXIS
     Dosage: 81 MG

REACTIONS (1)
  - WHEEZING [None]
